FAERS Safety Report 17694789 (Version 1)
Quarter: 2020Q2

REPORT INFORMATION
  Report Type: Other
  Country: CA (occurrence: CA)
  Receive Date: 20200422
  Receipt Date: 20200422
  Transmission Date: 20200714
  Serious: Yes (Hospitalization)
  Sender: FDA-Public Use
  Company Number: CA-PFIZER INC-2020159261

PATIENT
  Age: 66 Year
  Sex: Female

DRUGS (33)
  1. HYDROMORPHONE HYDROCHLORIDE. [Suspect]
     Active Substance: HYDROMORPHONE HYDROCHLORIDE
     Dosage: 4 MG, UNK
     Route: 042
  2. KETAMINE [Suspect]
     Active Substance: KETAMINE
     Dosage: UNK
     Route: 065
  3. METHADONE [Suspect]
     Active Substance: METHADONE HYDROCHLORIDE
     Dosage: 6 MG, 3X/DAY
     Route: 065
  4. OXYCODONE [Suspect]
     Active Substance: OXYCODONE
     Dosage: UNK
     Route: 048
  5. CLONIDINE. [Concomitant]
     Active Substance: CLONIDINE
     Dosage: UNK
     Route: 065
  6. DOCUSATE SODIUM. [Concomitant]
     Active Substance: DOCUSATE SODIUM
     Dosage: UNK
     Route: 065
  7. POLYETHYLENE GLYCOL [Concomitant]
     Active Substance: POLYETHYLENE GLYCOLS
     Dosage: UNK
     Route: 065
  8. GABAPENTIN. [Suspect]
     Active Substance: GABAPENTIN
     Indication: GENERAL ANAESTHESIA
     Dosage: UNK
     Route: 065
  9. ACETAMINOPHEN. [Suspect]
     Active Substance: ACETAMINOPHEN
     Indication: ANALGESIC THERAPY
     Dosage: UNK
     Route: 065
  10. OXYCODONE [Suspect]
     Active Substance: OXYCODONE
     Dosage: UNK
     Route: 048
  11. IBUPROFEN. [Suspect]
     Active Substance: IBUPROFEN
     Indication: ANALGESIC THERAPY
     Dosage: UNK
     Route: 065
  12. KETAMINE [Suspect]
     Active Substance: KETAMINE
     Indication: GENERAL ANAESTHESIA
     Dosage: UNK
     Route: 065
  13. AMLODIPINE [Concomitant]
     Active Substance: AMLODIPINE BESYLATE
     Dosage: UNK
     Route: 065
  14. SENNOSIDES A+B [Concomitant]
     Active Substance: SENNOSIDES A AND B
     Dosage: UNK
     Route: 065
  15. HYDROMORPHONE HYDROCHLORIDE. [Suspect]
     Active Substance: HYDROMORPHONE HYDROCHLORIDE
     Dosage: UNK
     Route: 065
  16. KETAMINE [Suspect]
     Active Substance: KETAMINE
     Dosage: 60 MG, UNK
     Route: 042
  17. METHADONE [Suspect]
     Active Substance: METHADONE HYDROCHLORIDE
     Dosage: 8 MG, 3X/DAY
     Route: 065
  18. OXYCODONE [Suspect]
     Active Substance: OXYCODONE
     Indication: BACK PAIN
     Dosage: UNK
     Route: 048
  19. KETAMINE [Suspect]
     Active Substance: KETAMINE
     Dosage: UNK
     Route: 065
  20. BUSPIRONE [Concomitant]
     Active Substance: BUSPIRONE HYDROCHLORIDE
     Dosage: UNK
     Route: 065
  21. DALTEPARIN [Concomitant]
     Active Substance: DALTEPARIN
     Dosage: UNK
     Route: 065
  22. PREGABALIN. [Concomitant]
     Active Substance: PREGABALIN
     Dosage: UNK
     Route: 065
  23. METHADONE [Suspect]
     Active Substance: METHADONE HYDROCHLORIDE
     Dosage: 24 MG, 1X/DAY
     Route: 065
  24. LIDOCAINE HCL [Suspect]
     Active Substance: LIDOCAINE HYDROCHLORIDE
     Indication: LOCAL ANAESTHESIA
     Dosage: 50 MG, UNK
     Route: 042
  25. OXYCODONE [Suspect]
     Active Substance: OXYCODONE
     Dosage: 70 MG, 1X/DAY
     Route: 048
  26. FERROUS FUMARATE [Concomitant]
     Active Substance: FERROUS FUMARATE
     Dosage: UNK
     Route: 065
  27. DEXMEDETOMIDINE HYDROCHLORIDE. [Suspect]
     Active Substance: DEXMEDETOMIDINE HYDROCHLORIDE
     Indication: GENERAL ANAESTHESIA
     Dosage: UNK
     Route: 065
  28. HYDROMORPHONE HYDROCHLORIDE. [Suspect]
     Active Substance: HYDROMORPHONE HYDROCHLORIDE
     Indication: GENERAL ANAESTHESIA
     Dosage: UNK
     Route: 065
  29. METHADONE [Suspect]
     Active Substance: METHADONE HYDROCHLORIDE
     Dosage: 5 MG, 3X/DAY
     Route: 065
  30. OXYCODONE [Suspect]
     Active Substance: OXYCODONE
     Dosage: 10 MG, UNK
     Route: 048
  31. SUFENTANIL [Suspect]
     Active Substance: SUFENTANIL
     Indication: GENERAL ANAESTHESIA
     Dosage: UNK
     Route: 065
  32. COTRIMOXAZOL [Concomitant]
     Active Substance: SULFAMETHOXAZOLE\TRIMETHOPRIM
     Dosage: UNK
     Route: 065
  33. METFORMIN [Concomitant]
     Active Substance: METFORMIN HYDROCHLORIDE
     Dosage: UNK
     Route: 065

REACTIONS (5)
  - Constipation [Recovered/Resolved]
  - Therapeutic product effect incomplete [Recovered/Resolved]
  - Therapy partial responder [Recovered/Resolved]
  - Pain [Recovered/Resolved]
  - Withdrawal syndrome [Recovered/Resolved]
